FAERS Safety Report 7559703-2 (Version None)
Quarter: 2011Q2

REPORT INFORMATION
  Report Type: 
  Country: None (occurrence: None)
  Receive Date: 20110617
  Receipt Date: 20110617
  Transmission Date: 20111010
  Serious: Yes (Life-Threatening, Disabling)
  Sender: FDA-Public Use
  Company Number: None

PATIENT
  Sex: Male
  Weight: 184.2 kg

DRUGS (2)
  1. LEUCOVORIN 10MG/ML WYETH [Suspect]
     Dosage: 693MG Q 2 WEEKS IV DRIP
     Route: 041
     Dates: start: 20110221, end: 20110615
  2. ELOXATIN [Suspect]
     Indication: COLON CANCER
     Dosage: 147MG Q 2 WEEKS IV DRIP
     Route: 041
     Dates: start: 20110221, end: 20110615

REACTIONS (3)
  - RASH [None]
  - PAIN IN EXTREMITY [None]
  - ERYTHEMA [None]
